FAERS Safety Report 4461965-5 (Version None)
Quarter: 2004Q3

REPORT INFORMATION
  Report Type: 
  Country: None (occurrence: None)
  Receive Date: 20040923
  Receipt Date: 20040913
  Transmission Date: 20050211
  Serious: Yes (Death, Hospitalization)
  Sender: FDA-Public Use
  Company Number: 2004233840GB

PATIENT
  Age: 66 Year
  Sex: Female
  Weight: 61 kg

DRUGS (1)
  1. DOXORUBICIN HYDROCHLORIDE [Suspect]
     Indication: OVARIAN CANCER METASTATIC
     Dosage: 84MG, IV
     Route: 042
     Dates: start: 20040727, end: 20040727

REACTIONS (5)
  - MUCOSAL INFLAMMATION [None]
  - NEUTROPENIA [None]
  - OESOPHAGEAL DISORDER [None]
  - SEPTIC SHOCK [None]
  - STOMATITIS [None]
